FAERS Safety Report 8073469-1 (Version None)
Quarter: 2012Q1

REPORT INFORMATION
  Report Type: 
  Country: None (occurrence: None)
  Receive Date: 20120126
  Receipt Date: 20120126
  Transmission Date: 20120608
  Serious: Yes (Other)
  Sender: FDA-Public Use
  Company Number: None

PATIENT
  Age: 56 Year
  Sex: Male
  Weight: 74.842 kg

DRUGS (7)
  1. TAMSULOSIN HCL [Concomitant]
  2. ACIPHEX [Suspect]
     Indication: DYSPEPSIA
     Dosage: 20.0 MG
     Route: 048
     Dates: start: 20120118, end: 20120123
  3. BUSPIRONE HCL [Concomitant]
  4. CYMBALTA [Concomitant]
  5. SIMVASTATIN [Concomitant]
  6. GEODON [Concomitant]
  7. DIAZEPAM [Concomitant]

REACTIONS (1)
  - INSOMNIA [None]
